FAERS Safety Report 4329789-7 (Version None)
Quarter: 2004Q1

REPORT INFORMATION
  Report Type: 
  Country: None (occurrence: None)
  Receive Date: 20040329
  Receipt Date: 20040218
  Transmission Date: 20041129
  Serious: No
  Sender: FDA-Public Use
  Company Number: 04P-163-0250545-00

PATIENT
  Age: 65 Year
  Sex: Female
  Weight: 68.0396 kg

DRUGS (8)
  1. HUMIRA [Suspect]
     Indication: RHEUMATOID ARTHRITIS
     Dosage: 40 MG, 1 IN 2 WK, SUBCUTANEOUS
     Route: 058
     Dates: start: 20030801
  2. GARDEN OF LIFE [Concomitant]
  3. MULTIVITAMIN [Concomitant]
  4. METHOTREXATE SODIUM [Concomitant]
  5. LEVOTHYROXINE SODIUM [Concomitant]
  6. DILTIAZEM HYDROCHLORIDE [Concomitant]
  7. QUINAPRIL HYDROCHLORIDE [Concomitant]
  8. FOLIC ACID [Concomitant]

REACTIONS (3)
  - DRY MOUTH [None]
  - DYSPHAGIA [None]
  - HEADACHE [None]
